FAERS Safety Report 6602110-7 (Version None)
Quarter: 2010Q1

REPORT INFORMATION
  Report Type: 
  Country: None (occurrence: None)
  Receive Date: 20100225
  Receipt Date: 20100216
  Transmission Date: 20100710
  Serious: Yes (Other)
  Sender: FDA-Public Use
  Company Number: PHHY2010ES08724

PATIENT
  Age: 40 Year
  Sex: Female

DRUGS (6)
  1. MYFORTIC [Suspect]
     Indication: TRANSPLANT REJECTION
     Dosage: 360 MG, BID
     Route: 048
     Dates: start: 20081215, end: 20090516
  2. LEVOFLOXACIN [Suspect]
     Dosage: UNK
     Dates: start: 20090509, end: 20090514
  3. VALCYTE [Suspect]
     Indication: CYTOMEGALOVIRUS INFECTION
     Dosage: 450 MG DAILY
     Route: 048
     Dates: start: 20090421
  4. CERTICAN [Concomitant]
  5. DACORTIN [Concomitant]
     Dosage: UNK
  6. MERONEM [Concomitant]
     Dosage: UNK
     Dates: start: 20090427, end: 20090509

REACTIONS (2)
  - AGRANULOCYTOSIS [None]
  - CYTOMEGALOVIRUS INFECTION [None]
